FAERS Safety Report 8453579-7 (Version None)
Quarter: 2012Q2

REPORT INFORMATION
  Report Type: 
  Country: None (occurrence: None)
  Receive Date: 20120620
  Receipt Date: 20120618
  Transmission Date: 20120825
  Serious: Yes (Death)
  Sender: FDA-Public Use
  Company Number: US-CELGENEUS-163-21880-12062590

PATIENT
  Sex: Female

DRUGS (4)
  1. EXTRA STRENGTH TYLENOL [Concomitant]
     Route: 065
  2. ONDANSETRON HCL [Concomitant]
     Route: 065
  3. ASPIRIN [Concomitant]
     Dosage: LOW STRENGTH
     Route: 065
  4. REVLIMID [Suspect]
     Dosage: 25 MILLIGRAM
     Route: 048
     Dates: start: 20090224, end: 20120101

REACTIONS (1)
  - DEATH [None]
